FAERS Safety Report 22045716 (Version 1)
Quarter: 2023Q1

REPORT INFORMATION
  Report Type: Report from Study
  Country: US (occurrence: US)
  Receive Date: 20230228
  Receipt Date: 20230228
  Transmission Date: 20230418
  Serious: Yes (Other)
  Sender: FDA-Public Use
  Company Number: US-MYLANLABS-2023M1000615

PATIENT
  Sex: Female

DRUGS (1)
  1. XALATAN [Suspect]
     Active Substance: LATANOPROST
     Indication: Product used for unknown indication
     Dosage: UNK
     Route: 047

REACTIONS (8)
  - Glioma [Unknown]
  - Illness [Not Recovered/Not Resolved]
  - Malaise [Unknown]
  - Hypoacusis [Unknown]
  - Depressed mood [Unknown]
  - Chest pain [Unknown]
  - Product dose omission issue [Unknown]
  - Product use issue [Unknown]
